FAERS Safety Report 8965431 (Version 1)
Quarter: 2012Q4

REPORT INFORMATION
  Report Type: 
  Country: US (occurrence: US)
  Receive Date: 20121213
  Receipt Date: 20121213
  Transmission Date: 20130627
  Serious: Yes (Other)
  Sender: FDA-Public Use
  Company Number: US-BAYER-2012-129884

PATIENT
  Age: 25 Year
  Sex: Female

DRUGS (3)
  1. YASMIN [Suspect]
  2. DEPAKOTE [Concomitant]
     Dosage: 825 mg, HS
  3. TYLENOL WITH CODEINE [Concomitant]
     Indication: PAIN
     Dosage: 1 tablet every 4-6 hours as needed

REACTIONS (1)
  - Deep vein thrombosis [None]
